FAERS Safety Report 16148629 (Version 3)
Quarter: 2019Q2

REPORT INFORMATION
  Report Type: Spontaneous
  Country: US (occurrence: US)
  Receive Date: 20190402
  Receipt Date: 20190610
  Transmission Date: 20190711
  Serious: No
  Sender: FDA-Public Use
  Company Number: US-PFIZER INC-2019134945

PATIENT
  Age: 67 Year
  Sex: Female
  Weight: 52 kg

DRUGS (11)
  1. HERCEPTIN [Concomitant]
     Active Substance: TRASTUZUMAB
     Dosage: UNK
  2. ESTRADIOL. [Concomitant]
     Active Substance: ESTRADIOL
     Indication: HORMONE THERAPY
     Dosage: UNK
     Dates: start: 199901, end: 201512
  3. ARIMIDEX [Concomitant]
     Active Substance: ANASTROZOLE
     Indication: HORMONE THERAPY
     Dosage: UNK
     Dates: start: 20160319, end: 20170410
  4. DOCETAXEL. [Suspect]
     Active Substance: DOCETAXEL
     Indication: BREAST CANCER METASTATIC
     Dosage: UNK, (EVERY THREE WEEKS, 4 CYCLES)
     Dates: start: 20150805, end: 20151007
  5. ADRIAMYCIN [Concomitant]
     Active Substance: DOXORUBICIN HYDROCHLORIDE
     Indication: CHEMOTHERAPY
     Dosage: UNK
  6. NEOSAR [Concomitant]
     Active Substance: CYCLOPHOSPHAMIDE
     Indication: CHEMOTHERAPY
     Dosage: UNK
  7. DOXIL [Concomitant]
     Active Substance: DOXORUBICIN HYDROCHLORIDE
     Indication: CHEMOTHERAPY
     Dosage: UNK
  8. PROGESTERONE. [Concomitant]
     Active Substance: PROGESTERONE
     Indication: HORMONE THERAPY
     Dosage: UNK
     Dates: start: 199901, end: 201512
  9. PERJETA [Concomitant]
     Active Substance: PERTUZUMAB
     Indication: HORMONE THERAPY
     Dosage: UNK
     Dates: start: 20150805, end: 20151007
  10. TAXOTERE [Suspect]
     Active Substance: DOCETAXEL
     Indication: BREAST CANCER METASTATIC
     Dosage: UNK, (EVERY THREE WEEKS, 4 CYCLES)
     Dates: start: 20150805, end: 20151007
  11. TESTOSTERONE. [Concomitant]
     Active Substance: TESTOSTERONE
     Indication: HORMONE THERAPY
     Dosage: UNK
     Dates: start: 199901, end: 201512

REACTIONS (5)
  - Hair disorder [Unknown]
  - Alopecia [Not Recovered/Not Resolved]
  - Madarosis [Not Recovered/Not Resolved]
  - Hair texture abnormal [Unknown]
  - Hair colour changes [Unknown]

NARRATIVE: CASE EVENT DATE: 201604
